FAERS Safety Report 11734769 (Version 1)
Quarter: 2015Q4

REPORT INFORMATION
  Report Type: Spontaneous
  Country: US (occurrence: None)
  Receive Date: 20151112
  Receipt Date: 20151112
  Transmission Date: 20160304
  Serious: Yes (Hospitalization)
  Sender: FDA-Public Use
  Company Number: None

PATIENT
  Age: 71 Year
  Sex: Female
  Weight: 61 kg

DRUGS (8)
  1. RIVAROXABAN 20MG [Suspect]
     Active Substance: RIVAROXABAN
     Indication: PULMONARY EMBOLISM
     Route: 048
     Dates: start: 20150828, end: 20151103
  2. AZITHROMYCIN [Concomitant]
     Active Substance: AZITHROMYCIN ANHYDROUS
  3. LISINOPRIL. [Concomitant]
     Active Substance: LISINOPRIL
  4. AMIODARONE [Concomitant]
     Active Substance: AMIODARONE
  5. BENZONATATE. [Concomitant]
     Active Substance: BENZONATATE
  6. MUCINEX [Concomitant]
     Active Substance: GUAIFENESIN
  7. ESCITALOPRAM [Concomitant]
     Active Substance: ESCITALOPRAM OXALATE
  8. LORAZEPAM. [Concomitant]
     Active Substance: LORAZEPAM

REACTIONS (6)
  - Post procedural haemorrhage [None]
  - Abdominal pain upper [None]
  - Haemorrhage [None]
  - Blood pressure systolic decreased [None]
  - Haemorrhagic ascites [None]
  - Haematoma [None]

NARRATIVE: CASE EVENT DATE: 20151103
